FAERS Safety Report 8112544-X (Version None)
Quarter: 2012Q1

REPORT INFORMATION
  Report Type: 
  Country: None (occurrence: None)
  Receive Date: 20120203
  Receipt Date: 20120126
  Transmission Date: 20120608
  Serious: Yes (Hospitalization)
  Sender: FDA-Public Use
  Company Number: DE-ROCHE-1028542

PATIENT
  Age: 44 Year
  Sex: Female
  Weight: 68 kg

DRUGS (4)
  1. TELAPREVIR [Suspect]
     Route: 065
     Dates: start: 20111104, end: 20111110
  2. PEGINTERFERON ALFA-2A [Suspect]
     Indication: HEPATITIS C
     Route: 058
     Dates: start: 20111104, end: 20111112
  3. COPEGUS [Suspect]
     Indication: HEPATITIS C
     Route: 065
     Dates: start: 20111104, end: 20111112
  4. TELAPREVIR [Suspect]
     Indication: HEPATITIS C
     Route: 065
     Dates: start: 20111104, end: 20111110

REACTIONS (3)
  - GASTROINTESTINAL MUCOSAL DISORDER [None]
  - MUCOUS MEMBRANE DISORDER [None]
  - GENERALISED ERYTHEMA [None]
